FAERS Safety Report 4274324-5 (Version None)
Quarter: 2004Q1

REPORT INFORMATION
  Report Type: 
  Country: None (occurrence: None)
  Receive Date: 20040115
  Receipt Date: 20040106
  Transmission Date: 20041129
  Serious: Yes (Death, Life-Threatening, Hospitalization)
  Sender: FDA-Public Use
  Company Number: DE-JNJFOC-20031204277

PATIENT
  Age: 87 Year
  Sex: Male

DRUGS (14)
  1. LEVOFLOXACIN [Suspect]
     Indication: PNEUMONIA
     Dosage: INTRAVENOUS
     Route: 042
     Dates: start: 20031201, end: 20031203
  2. LEVOFLOXACIN [Suspect]
     Indication: PNEUMONIA
     Dosage: ORAL
     Route: 048
     Dates: start: 20031204, end: 20031210
  3. HYDROCHLOROTHIAZIDE [Concomitant]
  4. COUMADIN [Concomitant]
  5. DIGOXIN [Concomitant]
  6. ACTOS [Concomitant]
  7. GLUCOTROL XL [Concomitant]
  8. PAXIL [Concomitant]
  9. LASIX [Concomitant]
  10. FLOMAX [Concomitant]
  11. MULTI-VITAMINS [Concomitant]
  12. VITAMIN E [Concomitant]
  13. FERROUS SULFATE TAB [Concomitant]
  14. SENNA LAXATIVE (SENNA) [Concomitant]

REACTIONS (2)
  - ACUTE MYOCARDIAL INFARCTION [None]
  - RECTAL HAEMORRHAGE [None]
